FAERS Safety Report 4618107-2 (Version None)
Quarter: 2005Q1

REPORT INFORMATION
  Report Type: 
  Country: None (occurrence: None)
  Receive Date: 20050322
  Receipt Date: 20050311
  Transmission Date: 20050727
  Serious: Yes (Hospitalization, Other)
  Sender: FDA-Public Use
  Company Number: KII-2005-0015486

PATIENT
  Age: 38 Year
  Sex: Female

DRUGS (8)
  1. OXYCODONE HCL [Suspect]
     Dosage: SEE TEXT, ORAL
     Route: 048
  2. VALPROIC ACID [Suspect]
     Dosage: SEE TEXT, ORAL
     Route: 048
  3. BENZODIAZEPINE DERIVATIVES() [Suspect]
     Dosage: SEE TEXT, ORAL
     Route: 048
  4. OTHER HYPNOTICS AND SEDATIVES () [Suspect]
     Dosage: SEE TEXT, ORAL
     Route: 048
  5. BETA BLOCKING AGENTS() [Suspect]
     Dosage: ORAL
     Route: 048
  6. ETHANOL (ETHANOL) [Suspect]
     Dosage: ORAL
     Route: 048
  7. COCAINE (COCAINE) [Suspect]
  8. ACETAMINOPHEN [Suspect]

REACTIONS (7)
  - DRUG ABUSER [None]
  - DRUG SCREEN POSITIVE [None]
  - HEART RATE INCREASED [None]
  - INTENTIONAL MISUSE [None]
  - LETHARGY [None]
  - SOMNOLENCE [None]
  - SUICIDE ATTEMPT [None]
